FAERS Safety Report 8548168 (Version 6)
Quarter: 2012Q4

REPORT INFORMATION
  Report Type: Report from Study
  Country: JP (occurrence: JP)
  Receive Date: 20120507
  Receipt Date: 20121231
  Transmission Date: 20130627
  Serious: Yes (Hospitalization, Other)
  Sender: FDA-Public Use
  Company Number: JP-VERTEX PHARMACEUTICAL INC.-AE-2012-006234

PATIENT
  Age: 51 Year
  Sex: Male

DRUGS (29)
  1. VX-950 (TELAPREVIR) [Suspect]
     Indication: CHRONIC HEPATITIS C
     Dosage: 2250 mg, qd
     Route: 048
     Dates: start: 20120315, end: 20120323
  2. VX-950 (TELAPREVIR) [Suspect]
     Dosage: 1500 mg, qd
     Route: 048
     Dates: start: 20120324, end: 20120409
  3. VX-950 (TELAPREVIR) [Suspect]
     Dosage: 750 mg, qd
     Route: 048
     Dates: start: 20120410, end: 20120419
  4. VX-950 (TELAPREVIR) [Suspect]
     Dosage: 500 mg, qd
     Route: 048
     Dates: start: 20120510, end: 20120514
  5. PEGINTERFERON ALFA-2B [Suspect]
     Indication: CHRONIC HEPATITIS C
     Dosage: 1.5 ?g/kg, qw
     Route: 058
     Dates: start: 20120315, end: 20120412
  6. PEGINTERFERON ALFA-2B [Suspect]
     Dosage: 1.5 ?g/kg, qw
     Route: 058
     Dates: start: 20120510
  7. REBETOL [Suspect]
     Indication: CHRONIC HEPATITIS C
     Dosage: 800 mg, qd
     Route: 048
     Dates: start: 20120315, end: 20120323
  8. REBETOL [Suspect]
     Dosage: 400 mg, qd
     Route: 048
     Dates: start: 20120324, end: 20120419
  9. REBETOL [Suspect]
     Dosage: 200 mg, qd
     Route: 048
     Dates: start: 20120510, end: 20120523
  10. REBETOL [Suspect]
     Dosage: 400 mg, qd
     Route: 048
     Dates: start: 20120524
  11. LOXOPROFEN [Concomitant]
     Dosage: 180 mg, qd
     Route: 048
     Dates: start: 20120315, end: 20120328
  12. TAKEPRON [Concomitant]
     Dosage: 15 mg, qd
     Route: 048
     Dates: start: 20120315, end: 20120419
  13. TAKEPRON [Concomitant]
     Dosage: 15 mg, qd
     Route: 048
     Dates: start: 20120510, end: 20120530
  14. TALION                             /01587402/ [Concomitant]
     Dosage: 20 mg, qd
     Route: 048
     Dates: start: 20120315, end: 20120419
  15. TALION                             /01587402/ [Concomitant]
     Dosage: 20 mg, qd
     Route: 048
     Dates: start: 20120510
  16. DERMOVATE [Concomitant]
     Dosage: UNK UNK, prn
     Route: 061
     Dates: start: 20120322
  17. AZUNOL GARGLE LIQUID [Concomitant]
     Dosage: UNK
     Route: 049
     Dates: start: 20120614, end: 20120621
  18. PL [Concomitant]
     Dosage: 3 g, qd
     Route: 048
     Dates: start: 20120614, end: 20120621
  19. MUCODYNE [Concomitant]
     Dosage: 1500 mg, qd
     Route: 048
     Dates: start: 20120614, end: 20120802
  20. MUCODYNE [Concomitant]
     Dosage: 1500 mg, qd
     Route: 048
     Dates: start: 20120830
  21. ASTOMIN                            /00426502/ [Concomitant]
     Dosage: 30 mg, qd
     Route: 048
     Dates: start: 20120621, end: 20120802
  22. ASTOMIN                            /00426502/ [Concomitant]
     Dosage: 60 mg, qd
     Route: 048
     Dates: start: 20120830
  23. MUCOSOLVAN [Concomitant]
     Dosage: 45 mg, qd
     Route: 048
     Dates: start: 20120621, end: 20120712
  24. SINGULAIR [Concomitant]
     Dosage: 10 mg, qd
     Route: 048
     Dates: start: 20120802, end: 20120816
  25. SINGULAIR [Concomitant]
     Dosage: 10 mg, qd
     Route: 048
     Dates: start: 20120830
  26. LAC-B [Concomitant]
     Dosage: 3 g, qd
     Route: 048
     Dates: start: 20120802
  27. URSO                               /00465701/ [Concomitant]
     Dosage: 600 mg, qd
     Route: 048
     Dates: start: 20120809
  28. ADOAIR [Concomitant]
     Dosage: 500 ?g, qd
     Route: 055
     Dates: start: 20120816
  29. NEUFAN [Concomitant]
     Dosage: 100 mg, qd
     Route: 048
     Dates: start: 20120517, end: 20120920

REACTIONS (4)
  - Renal impairment [Recovered/Resolved]
  - Rash [Recovered/Resolved]
  - Rash [Recovered/Resolved]
  - Rash [Recovered/Resolved]
